FAERS Safety Report 15562287 (Version 1)
Quarter: 2018Q4

REPORT INFORMATION
  Report Type: Spontaneous
  Country: JP (occurrence: JP)
  Receive Date: 20181029
  Receipt Date: 20181029
  Transmission Date: 20190205
  Serious: Yes (Other)
  Sender: FDA-Public Use
  Company Number: JP-PFIZER INC-2018433830

PATIENT
  Age: 39 Year
  Sex: Female

DRUGS (1)
  1. VIBRAMYCIN [Suspect]
     Active Substance: DOXYCYCLINE
     Indication: ACNE
     Dosage: UNK

REACTIONS (3)
  - Oesophageal ulcer [Unknown]
  - Product use in unapproved indication [Unknown]
  - Chest discomfort [Unknown]
